FAERS Safety Report 6728952-5 (Version None)
Quarter: 2010Q2

REPORT INFORMATION
  Report Type: 
  Country: None (occurrence: None)
  Receive Date: 20100517
  Receipt Date: 20100318
  Transmission Date: 20101027
  Serious: No
  Sender: FDA-Public Use
  Company Number: US-ABBOTT-10P-163-0633264-00

PATIENT
  Sex: Female
  Weight: 89.892 kg

DRUGS (14)
  1. SIMCOR [Suspect]
     Indication: BLOOD CHOLESTEROL INCREASED
     Dosage: 500/20MG
     Dates: start: 20091001
  2. SIMCOR [Suspect]
     Indication: HIGH DENSITY LIPOPROTEIN DECREASED
  3. GABAPOETIN [Concomitant]
     Indication: DRUG USE FOR UNKNOWN INDICATION
     Route: 048
  4. CYMBALTA [Concomitant]
     Indication: DRUG USE FOR UNKNOWN INDICATION
     Dosage: QD
     Route: 048
  5. LASIX [Concomitant]
     Indication: DRUG USE FOR UNKNOWN INDICATION
     Dosage: QD
     Route: 048
  6. SYNTHROID [Concomitant]
     Indication: DRUG USE FOR UNKNOWN INDICATION
     Dosage: QD
     Route: 048
  7. AMILODIPINE [Concomitant]
     Indication: DRUG USE FOR UNKNOWN INDICATION
     Dosage: QD
     Route: 048
  8. BENAZEPRIL HYDROCHLORIDE [Concomitant]
     Indication: DRUG USE FOR UNKNOWN INDICATION
     Dosage: QD
     Route: 048
  9. NEXIUM [Concomitant]
     Indication: DRUG USE FOR UNKNOWN INDICATION
     Dosage: QD
     Route: 048
  10. TINACTIN [Concomitant]
     Indication: DRUG USE FOR UNKNOWN INDICATION
     Dosage: QD
     Route: 048
  11. CEFDINIR [Concomitant]
     Indication: DRUG USE FOR UNKNOWN INDICATION
     Dosage: QD
     Route: 048
  12. TRILIPIX [Concomitant]
     Indication: DRUG USE FOR UNKNOWN INDICATION
     Dosage: QD
     Route: 048
  13. VITAMIN D [Concomitant]
     Indication: DRUG USE FOR UNKNOWN INDICATION
     Dosage: QD
     Route: 048
  14. ASPIRIN [Concomitant]
     Indication: DRUG USE FOR UNKNOWN INDICATION
     Dosage: QD
     Route: 048

REACTIONS (1)
  - FLUSHING [None]
